FAERS Safety Report 5064624-3 (Version None)
Quarter: 2006Q3

REPORT INFORMATION
  Report Type: 
  Country: None (occurrence: None)
  Receive Date: 20060706
  Receipt Date: 20060408
  Transmission Date: 20061208
  Serious: No
  Sender: FDA-Public Use
  Company Number: 200612244BWH

PATIENT
  Sex: Male

DRUGS (4)
  1. LEVITRA [Suspect]
     Indication: DRUG USE FOR UNKNOWN INDICATION
     Dosage: ORAL
     Route: 048
  2. LOTREL [Concomitant]
  3. ACTOPLUS MET [Concomitant]
  4. MALE HRT [Concomitant]

REACTIONS (1)
  - DRUG EFFECT DECREASED [None]
